FAERS Safety Report 7657549-8 (Version None)
Quarter: 2011Q3

REPORT INFORMATION
  Report Type: 
  Country: None (occurrence: None)
  Receive Date: 20110804
  Receipt Date: 20110725
  Transmission Date: 20111222
  Serious: Yes (Hospitalization, Other)
  Sender: FDA-Public Use
  Company Number: US-AMGEN-USASP2011035508

PATIENT
  Sex: Male

DRUGS (3)
  1. ENBREL [Suspect]
     Indication: PSORIASIS
     Dosage: 50 MG, QWK
     Dates: start: 20090801, end: 20110201
  2. ENBREL [Suspect]
     Indication: PSORIATIC ARTHROPATHY
     Dosage: 50 MG, QWK
     Dates: start: 20110605
  3. METHOTREXATE [Suspect]

REACTIONS (5)
  - SINUSITIS [None]
  - PSORIASIS [None]
  - ALLERGIC RESPIRATORY SYMPTOM [None]
  - SEASONAL ALLERGY [None]
  - PSORIATIC ARTHROPATHY [None]
